FAERS Safety Report 8164509-X (Version None)
Quarter: 2012Q1

REPORT INFORMATION
  Report Type: 
  Country: None (occurrence: None)
  Receive Date: 20120224
  Receipt Date: 20120221
  Transmission Date: 20120608
  Serious: Yes (Hospitalization)
  Sender: FDA-Public Use
  Company Number: US-VERTEX PHARMACEUTICALS INC.-AE-2012-001911

PATIENT
  Sex: Male

DRUGS (7)
  1. INCIVEK [Suspect]
     Indication: HEPATITIS C
     Dates: start: 20110921, end: 20111212
  2. PEGASYS [Concomitant]
     Indication: HEPATITIS C
  3. LEVOTHYROXINE SODIUM [Concomitant]
  4. OMEPRAZOLE [Concomitant]
  5. RIBAVIRIN [Concomitant]
     Indication: HEPATITIS C
  6. TRIAMCINOLONE [Concomitant]
  7. FLUCONAZOLE [Concomitant]

REACTIONS (4)
  - SEPSIS [None]
  - STAPHYLOCOCCAL INFECTION [None]
  - PANCYTOPENIA [None]
  - RASH [None]
